FAERS Safety Report 5082157-5 (Version None)
Quarter: 2006Q3

REPORT INFORMATION
  Report Type: 
  Country: None (occurrence: None)
  Receive Date: 20060817
  Receipt Date: 20060731
  Transmission Date: 20061208
  Serious: Yes (Hospitalization)
  Sender: FDA-Public Use
  Company Number: JP-JNJFOC-20060800697

PATIENT
  Age: 62 Year
  Sex: Female

DRUGS (6)
  1. LEVOFLOXACIN [Suspect]
     Indication: NASOPHARYNGITIS
     Route: 048
     Dates: start: 20060318, end: 20060327
  2. MAOUBUSHISAISHINTOU [Concomitant]
     Route: 065
  3. CALONAL [Concomitant]
     Route: 065
  4. HUSCODE [Concomitant]
     Route: 065
  5. BISOLVON [Concomitant]
     Route: 065
  6. FOSMICIN [Concomitant]
     Route: 065

REACTIONS (1)
  - INTERSTITIAL LUNG DISEASE [None]
